FAERS Safety Report 14156496 (Version 2)
Quarter: 2017Q4

REPORT INFORMATION
  Report Type: Report from Study
  Country: US (occurrence: US)
  Receive Date: 20171103
  Receipt Date: 20171108
  Transmission Date: 20180321
  Serious: No
  Sender: FDA-Public Use
  Company Number: PHEH2017US035405

PATIENT
  Sex: Male

DRUGS (1)
  1. AFINITOR [Suspect]
     Active Substance: EVEROLIMUS
     Indication: ASTROCYTOMA, LOW GRADE
     Dosage: 10 MG, QD(ONCE DAILY)
     Route: 048
     Dates: start: 20171005, end: 20171019

REACTIONS (3)
  - Stomatitis [Unknown]
  - Laboratory test abnormal [Unknown]
  - Feeding disorder [Unknown]
